FAERS Safety Report 12725188 (Version 1)
Quarter: 2016Q3

REPORT INFORMATION
  Report Type: Spontaneous
  Country: US (occurrence: US)
  Receive Date: 20160905
  Receipt Date: 20160905
  Transmission Date: 20161109
  Serious: Yes (Other)
  Sender: FDA-Public Use
  Company Number: None

PATIENT
  Age: 56 Year
  Sex: Female
  Weight: 125.1 kg

DRUGS (10)
  1. AROMASIN [Concomitant]
     Active Substance: EXEMESTANE
  2. FLEXITOUCH [Concomitant]
  3. LISINOPRIL. [Concomitant]
     Active Substance: LISINOPRIL
  4. CPAP [Concomitant]
     Active Substance: DEVICE
  5. B VITAMINS [Concomitant]
     Active Substance: CYANOCOBALAMIN\DEXPANTHENOL\NIACINAMIDE\PYRIDOXINE HYDROCHLORIDE\RIBOFLAVIN 5^-PHOSPHATE SODIUM\THIAMINE HYDROCHLORIDE\VITAMIN B COMPLEX
  6. POTASSIUM [Concomitant]
     Active Substance: POTASSIUM
  7. LOVASTATIN. [Suspect]
     Active Substance: LOVASTATIN
     Indication: BLOOD CHOLESTEROL INCREASED
     Route: 048
     Dates: start: 20160831, end: 20160904
  8. TYLENOL [Concomitant]
     Active Substance: ACETAMINOPHEN
  9. BABY ASPIRIN [Concomitant]
     Active Substance: ASPIRIN
  10. CITALOPRAM [Concomitant]
     Active Substance: CITALOPRAM HYDROBROMIDE

REACTIONS (2)
  - Urine output decreased [None]
  - Diarrhoea [None]

NARRATIVE: CASE EVENT DATE: 20160903
